FAERS Safety Report 5125914-9 (Version None)
Quarter: 2006Q4

REPORT INFORMATION
  Report Type: 
  Country: None (occurrence: None)
  Receive Date: 20061012
  Receipt Date: 20061010
  Transmission Date: 20070319
  Serious: Yes (Other)
  Sender: FDA-Public Use
  Company Number: DE-GLAXOSMITHKLINE-D0051110A

PATIENT
  Age: 76 Year
  Sex: Female

DRUGS (8)
  1. AVANDAMET [Suspect]
     Route: 048
     Dates: start: 20060501
  2. METFORMIN HCL [Concomitant]
     Route: 048
     Dates: end: 20060501
  3. RAMIPRIL [Concomitant]
     Route: 065
  4. MOXONIDIN [Concomitant]
     Route: 065
  5. MOBLOC [Concomitant]
     Route: 065
  6. HCT [Concomitant]
     Route: 065
  7. ISOPTIN [Concomitant]
     Route: 065
  8. FUROSEMIDE [Concomitant]
     Route: 065

REACTIONS (2)
  - ANAEMIA [None]
  - BLOOD CREATININE INCREASED [None]
